FAERS Safety Report 7333200-1 (Version None)
Quarter: 2011Q1

REPORT INFORMATION
  Report Type: 
  Country: None (occurrence: None)
  Receive Date: 20110304
  Receipt Date: 20110220
  Transmission Date: 20110831
  Serious: Yes (Hospitalization)
  Sender: FDA-Public Use
  Company Number: NL-MEDIMMUNE-MEDI-0012761

PATIENT
  Sex: Female
  Weight: 3.64 kg

DRUGS (1)
  1. SYNAGIS [Suspect]
     Route: 030
     Dates: start: 20101228, end: 20110125

REACTIONS (5)
  - COUGH [None]
  - SOMNOLENCE [None]
  - OXYGEN SATURATION DECREASED [None]
  - INFANTILE SPITTING UP [None]
  - NASOPHARYNGITIS [None]
